FAERS Safety Report 17784003 (Version 1)
Quarter: 2020Q2

REPORT INFORMATION
  Report Type: Spontaneous
  Country: US (occurrence: US)
  Receive Date: 20200513
  Receipt Date: 20200513
  Transmission Date: 20200714
  Serious: Yes (Other)
  Sender: FDA-Public Use
  Company Number: US-PURDUE PHARMA-GBR-2020-0076641

PATIENT
  Age: 69 Year
  Sex: Female

DRUGS (6)
  1. NON-PMN MORPHINE SULFATE [Suspect]
     Active Substance: MORPHINE SULFATE
     Dosage: 5 MG, UNK
     Route: 042
  2. KETAMINE [Suspect]
     Active Substance: KETAMINE
     Indication: PAIN
     Dosage: 16 MG, UNK
     Route: 042
  3. AMITRIPTYLINE [Concomitant]
     Active Substance: AMITRIPTYLINE
     Dosage: 10 MG, DAILY
  4. NON-PMN MORPHINE SULFATE [Suspect]
     Active Substance: MORPHINE SULFATE
     Dosage: 5 MG, UNK
     Route: 042
  5. NON-PMN MORPHINE SULFATE [Suspect]
     Active Substance: MORPHINE SULFATE
     Indication: PAIN
     Dosage: 4 UNK, UNK
     Route: 042
  6. ONDASETRON                         /00955301/ [Concomitant]
     Active Substance: ONDANSETRON
     Dosage: 4 MG, UNK

REACTIONS (7)
  - Drug ineffective [Unknown]
  - Amnesia [Not Recovered/Not Resolved]
  - Lethargy [Recovered/Resolved]
  - Speech disorder [Recovered/Resolved]
  - Anterograde amnesia [Not Recovered/Not Resolved]
  - Confusional state [Recovered/Resolved]
  - Slow speech [Recovered/Resolved]
